FAERS Safety Report 9295196 (Version 2)
Quarter: 2013Q2

REPORT INFORMATION
  Report Type: Report from Study
  Country: US (occurrence: US)
  Receive Date: 20130517
  Receipt Date: 20130521
  Transmission Date: 20140414
  Serious: Yes (Other)
  Sender: FDA-Public Use
  Company Number: US-JNJFOC-20130503228

PATIENT
  Sex: Female
  Weight: 88.91 kg

DRUGS (4)
  1. INVEGA SUSTENNA [Suspect]
     Indication: SCHIZOPHRENIA, PARANOID TYPE
     Route: 030
     Dates: start: 20130124
  2. INVEGA SUSTENNA [Suspect]
     Indication: SCHIZOPHRENIA, PARANOID TYPE
     Route: 030
     Dates: start: 20130311
  3. INVEGA SUSTENNA [Suspect]
     Indication: SCHIZOPHRENIA, PARANOID TYPE
     Route: 030
  4. INVEGA SUSTENNA [Suspect]
     Indication: SCHIZOPHRENIA, PARANOID TYPE
     Route: 030
     Dates: start: 20130116

REACTIONS (6)
  - Drug administration error [Unknown]
  - Sedation [Recovering/Resolving]
  - Fatigue [Not Recovered/Not Resolved]
  - Weight increased [Not Recovered/Not Resolved]
  - Musculoskeletal stiffness [Recovered/Resolved]
  - Somnolence [Recovering/Resolving]
